FAERS Safety Report 5147264-7 (Version None)
Quarter: 2006Q4

REPORT INFORMATION
  Report Type: 
  Country: None (occurrence: None)
  Receive Date: 20061103
  Receipt Date: 20061019
  Transmission Date: 20070319
  Serious: Yes (Hospitalization)
  Sender: FDA-Public Use
  Company Number: 2006SP003640

PATIENT
  Age: 54 Year
  Sex: Female
  Weight: 86 kg

DRUGS (14)
  1. XOPENEX [Suspect]
     Indication: CHRONIC OBSTRUCTIVE PULMONARY DISEASE
     Dosage: 1.25MG/3ML;PRN;INHALATION
     Route: 055
     Dates: start: 20060301, end: 20060614
  2. XOPENEX [Suspect]
     Indication: CHRONIC OBSTRUCTIVE PULMONARY DISEASE
     Dosage: 45 UG;PRN;INHALATION
     Route: 055
     Dates: start: 20060301, end: 20060614
  3. TORSEMIDE [Concomitant]
  4. CLONIDINE [Concomitant]
  5. POTASSIUM ACETATE [Concomitant]
  6. IRON [Concomitant]
  7. LORAZEPAM [Concomitant]
  8. FLOVENT [Concomitant]
  9. METHADONE HCL [Concomitant]
  10. ASPIRIN [Suspect]
  11. OXYGEN [Concomitant]
  12. PRILOSEC [Concomitant]
  13. ATORVASTATIN CALCIUM [Concomitant]
  14. TEMAZEPAM [Concomitant]

REACTIONS (1)
  - BRONCHITIS [None]
